FAERS Safety Report 4990568-9 (Version None)
Quarter: 2006Q2

REPORT INFORMATION
  Report Type: 
  Country: None (occurrence: None)
  Receive Date: 20060427
  Receipt Date: 20060411
  Transmission Date: 20061013
  Serious: Yes (Death, Other)
  Sender: FDA-Public Use
  Company Number: WAES 0604USA01880

PATIENT
  Age: 72 Year
  Sex: Female

DRUGS (2)
  1. PRIMAXIN [Suspect]
     Indication: PNEUMONIA
     Dosage: 1500 MG/DAILY/IV
     Route: 042
     Dates: start: 20051121, end: 20051201
  2. INJ DORIPENEM UNK [Suspect]
     Indication: PNEUMONIA
     Dosage: 1500 MG/DAILY/IV
     Route: 042
     Dates: start: 20051121, end: 20051201

REACTIONS (1)
  - STATUS EPILEPTICUS [None]
